FAERS Safety Report 8514787-X (Version None)
Quarter: 2012Q3

REPORT INFORMATION
  Report Type: 
  Country: None (occurrence: None)
  Receive Date: 20120717
  Receipt Date: 20120713
  Transmission Date: 20120928
  Serious: Yes (Other)
  Sender: FDA-Public Use
  Company Number: US-PFIZER INC-2012141826

PATIENT
  Sex: Female
  Weight: 111.11 kg

DRUGS (11)
  1. ADVIL [Concomitant]
     Indication: PAIN IN EXTREMITY
     Dosage: UNK
  2. RANITIDINE [Concomitant]
     Indication: ABDOMINAL DISCOMFORT
     Dosage: 150 MG, DAILY
  3. CELEXA [Concomitant]
     Indication: DEPRESSION
     Dosage: 40 MG, DAILY
  4. ROBITUSSIN PEAK COLD MAXIMUM STRENGTH COUGH PLUS CHEST CONGESTION DM [Suspect]
     Indication: COUGH
     Dosage: UNK
     Dates: end: 20120601
  5. ROBITUSSIN PEAK COLD MAXIMUM STRENGTH COUGH PLUS CHEST CONGESTION DM [Suspect]
     Dosage: UNK
     Dates: start: 20120101
  6. EXCEDRIN (MIGRAINE) [Concomitant]
     Indication: MIGRAINE
     Dosage: UNK
  7. REQUIP [Concomitant]
     Indication: RESTLESS LEGS SYNDROME
     Dosage: 2 MG, DAILY AT BEDTIME
  8. COLACE [Concomitant]
     Dosage: 100 MG, 2X/DAY
  9. METFORMIN [Concomitant]
     Indication: DIABETES MELLITUS
     Dosage: 1000 MG, 2X/DAY
  10. SEROQUEL [Concomitant]
     Indication: DEPRESSION
     Dosage: 600 MG,DAILY
  11. OMEPRAZOLE [Concomitant]
     Indication: ABDOMINAL DISCOMFORT
     Dosage: 20 MG, DAILY

REACTIONS (8)
  - NASAL CONGESTION [None]
  - HEAD DISCOMFORT [None]
  - PRODUCT TASTE ABNORMAL [None]
  - OVARIAN CYST [None]
  - UPPER RESPIRATORY TRACT CONGESTION [None]
  - NASOPHARYNGITIS [None]
  - MALAISE [None]
  - GASTROENTERITIS [None]
